FAERS Safety Report 22205771 (Version 2)
Quarter: 2023Q2

REPORT INFORMATION
  Report Type: Spontaneous
  Country: US (occurrence: US)
  Receive Date: 20230413
  Receipt Date: 20230430
  Transmission Date: 20230722
  Serious: No
  Sender: FDA-Public Use
  Company Number: US-SA-SAC20230310001311

PATIENT
  Age: 70 Year
  Sex: Male

DRUGS (4)
  1. JEVTANA [Suspect]
     Active Substance: CABAZITAXEL
     Indication: Prostate cancer
     Dosage: 21.2 MG, Q3W
     Route: 041
  2. JEVTANA [Suspect]
     Active Substance: CABAZITAXEL
     Dosage: 42.4 MG Q3W
     Route: 041
     Dates: start: 20230301
  3. JEVTANA [Suspect]
     Active Substance: CABAZITAXEL
     Dosage: 31.8 MG, Q3W
     Route: 041
     Dates: start: 20230419
  4. JEVTANA [Suspect]
     Active Substance: CABAZITAXEL
     Indication: Prostate cancer
     Dosage: 60MG/1.5ML, Q3W
     Route: 041
     Dates: start: 20220616

REACTIONS (1)
  - Weight increased [Unknown]

NARRATIVE: CASE EVENT DATE: 20230410
